FAERS Safety Report 6131565-X (Version None)
Quarter: 2009Q1

REPORT INFORMATION
  Report Type: 
  Country: None (occurrence: None)
  Receive Date: 20090325
  Receipt Date: 20081111
  Transmission Date: 20090719
  Serious: Yes (Death)
  Sender: FDA-Public Use
  Company Number: US-BRISTOL-MYERS SQUIBB COMPANY-14374300

PATIENT
  Age: 87 Year
  Sex: Male
  Weight: 68 kg

DRUGS (6)
  1. ERBITUX [Suspect]
     Indication: HEAD AND NECK CANCER
     Route: 042
     Dates: start: 20081013, end: 20081013
  2. ASPIRIN [Concomitant]
  3. METOPROLOL TARTRATE [Concomitant]
  4. BENAZEPRIL HCL + HCTZ [Concomitant]
  5. BENADRYL [Concomitant]
     Indication: PREMEDICATION
     Route: 042
  6. DECADRON [Concomitant]
     Indication: PREMEDICATION
     Route: 042

REACTIONS (2)
  - COMA [None]
  - DEATH [None]
